FAERS Safety Report 8711739 (Version 2)
Quarter: 2012Q4

REPORT INFORMATION
  Report Type: 
  Country: US (occurrence: US)
  Receive Date: 20120807
  Receipt Date: 20120925
  Transmission Date: 20130627
  Serious: Yes (Hospitalization)
  Sender: FDA-Public Use
  Company Number: US-BAYER-2012-076591

PATIENT
  Age: 31 Year
  Sex: Female
  Weight: 63.49 kg

DRUGS (9)
  1. YAZ [Suspect]
     Indication: CONTRACEPTION
     Dosage: UNK
     Dates: start: 20080908, end: 20091209
  2. YAZ [Suspect]
     Indication: ACNE
  3. YAZ [Suspect]
     Indication: PREMENSTRUAL SYNDROME
  4. GIANVI [Suspect]
     Indication: CONTRACEPTION
     Dosage: UNK
     Dates: start: 20091209, end: 20100823
  5. GIANVI [Suspect]
     Indication: ACNE
  6. GIANVI [Suspect]
     Indication: PREMENSTRUAL SYNDROME
  7. BENZONATATE [Concomitant]
     Dosage: 200 mg, UNK
     Route: 048
  8. VICODIN [Concomitant]
     Indication: PAIN
     Dosage: 5 mg, 1-2 every 6 hrs prn
  9. NSAID^S [Concomitant]
     Dosage: Over the counter, use only as needed
     Dates: start: 2002

REACTIONS (2)
  - Pulmonary embolism [None]
  - Deep vein thrombosis [None]
